FAERS Safety Report 4511470-2 (Version None)
Quarter: 2004Q4

REPORT INFORMATION
  Report Type: 
  Country: None (occurrence: None)
  Receive Date: 20041129
  Receipt Date: 20040823
  Transmission Date: 20050328
  Serious: Yes (Disabling)
  Sender: FDA-Public Use
  Company Number: US-BRISTOL-MYERS SQUIBB COMPANY-12680989

PATIENT
  Age: 14 Year
  Sex: Male

DRUGS (5)
  1. ABILIFY [Suspect]
     Indication: AGGRESSION
     Dosage: DECREASSED TO 5 MG/DAY, THEN 2.5 MG/DAY, THEN DISCONTINUED
     Route: 048
     Dates: start: 20040512, end: 20040913
  2. ABILIFY [Suspect]
     Indication: MOOD SWINGS
     Dosage: DECREASSED TO 5 MG/DAY, THEN 2.5 MG/DAY, THEN DISCONTINUED
     Route: 048
     Dates: start: 20040512, end: 20040913
  3. ABILIFY [Suspect]
     Indication: PSYCHOTIC DISORDER
     Dosage: DECREASSED TO 5 MG/DAY, THEN 2.5 MG/DAY, THEN DISCONTINUED
     Route: 048
     Dates: start: 20040512, end: 20040913
  4. DEPAKOTE [Concomitant]
  5. CLONIDINE [Concomitant]

REACTIONS (6)
  - ASTHENIA [None]
  - COLD SWEAT [None]
  - DIZZINESS [None]
  - HYPERHIDROSIS [None]
  - PALLOR [None]
  - TREMOR [None]
